FAERS Safety Report 9357494 (Version 2)
Quarter: 2013Q3

REPORT INFORMATION
  Report Type: Spontaneous
  Country: ES (occurrence: None)
  Receive Date: 20130617
  Receipt Date: 20130701
  Transmission Date: 20140515
  Serious: Yes (Hospitalization)
  Sender: FDA-Public Use
  Company Number: ES-ZYDUS-001406

PATIENT
  Age: 69 Year
  Sex: Female

DRUGS (1)
  1. TRAMADOL [Suspect]

REACTIONS (2)
  - Hallucination, auditory [None]
  - Drug abuse [None]
